FAERS Safety Report 17251697 (Version 1)
Quarter: 2020Q1

REPORT INFORMATION
  Report Type: Spontaneous
  Country: CA (occurrence: CA)
  Receive Date: 20200109
  Receipt Date: 20200109
  Transmission Date: 20200409
  Serious: Yes (Other)
  Sender: FDA-Public Use
  Company Number: NVSC2020CA001459

PATIENT
  Age: 11 Year
  Sex: Male

DRUGS (5)
  1. METHOTREXATE. [Suspect]
     Active Substance: METHOTREXATE
     Indication: MACULAR OEDEMA
     Dosage: 20 MG, QW
     Route: 058
  2. FOLIC ACID. [Concomitant]
     Active Substance: FOLIC ACID
     Indication: MACULAR OEDEMA
     Dosage: 2 MG, QD
     Route: 048
  3. DEXAMETHASONE. [Concomitant]
     Active Substance: DEXAMETHASONE
     Indication: MACULAR OEDEMA
     Dosage: UNK %
     Route: 065
  4. PREDNISOLONE. [Concomitant]
     Active Substance: PREDNISOLONE
     Indication: MACULAR OEDEMA
     Dosage: UNK, QH
     Route: 065
  5. HOMATROPINE [Concomitant]
     Active Substance: HOMATROPINE HYDROBROMIDE
     Indication: MACULAR OEDEMA
     Dosage: 2 %, BID OU
     Route: 065

REACTIONS (3)
  - Macular oedema [Unknown]
  - Product use in unapproved indication [Unknown]
  - Condition aggravated [Unknown]
